FAERS Safety Report 9941689 (Version 2)
Quarter: 2014Q1

REPORT INFORMATION
  Report Type: Report from Study
  Country: US (occurrence: US)
  Receive Date: 20140303
  Receipt Date: 20140303
  Transmission Date: 20141002
  Serious: No
  Sender: FDA-Public Use
  Company Number: US-ABBVIE-13P-163-1035699-00

PATIENT
  Age: 50 Year
  Sex: Male
  Weight: 99.88 kg

DRUGS (22)
  1. HUMIRA [Suspect]
     Indication: CROHN^S DISEASE
     Dosage: 160MG LOADING DOSE
     Route: 058
     Dates: start: 20120106
  2. HUMIRA [Suspect]
     Dosage: 3 DOSES
     Dates: start: 20130106, end: 20130120
  3. DULERA [Concomitant]
     Indication: PULMONARY FIBROSIS
  4. DULERA [Concomitant]
     Indication: CHRONIC OBSTRUCTIVE PULMONARY DISEASE
  5. DULERA [Concomitant]
     Indication: GRANULOMATOSIS WITH POLYANGIITIS
  6. LOSARTAN [Concomitant]
     Indication: HYPERTENSION
  7. MORPHINE [Concomitant]
     Indication: ARTHRALGIA
  8. MORPHINE [Concomitant]
     Indication: ABDOMINAL PAIN
  9. MORPHINE [Concomitant]
     Indication: BONE PAIN
  10. MORPHINE [Concomitant]
     Indication: ABDOMINAL PAIN
  11. PREDNISONE [Concomitant]
     Indication: CROHN^S DISEASE
  12. PROTONIX [Concomitant]
     Indication: GASTROOESOPHAGEAL REFLUX DISEASE
  13. TESTOSTERONE [Concomitant]
     Indication: BLOOD TESTOSTERONE DECREASED
  14. VITAMIN B 12 [Concomitant]
     Indication: VITAMIN SUPPLEMENTATION
  15. ZOLPIDEM [Concomitant]
     Indication: PRODUCT USED FOR UNKNOWN INDICATION
  16. XOPENEX [Concomitant]
     Indication: CHRONIC OBSTRUCTIVE PULMONARY DISEASE
  17. XOPENEX [Concomitant]
     Indication: PULMONARY FIBROSIS
  18. XOPENEX [Concomitant]
     Indication: GRANULOMATOSIS WITH POLYANGIITIS
  19. XANAX [Concomitant]
     Indication: ANXIETY
  20. MULTIVITAMIN [Concomitant]
     Indication: VITAMIN SUPPLEMENTATION
  21. VITAMIN D [Concomitant]
     Indication: VITAMIN SUPPLEMENTATION
  22. FOSAMAX [Concomitant]
     Indication: OSTEOPOROSIS

REACTIONS (6)
  - Dizziness [Not Recovered/Not Resolved]
  - Tension headache [Not Recovered/Not Resolved]
  - Headache [Not Recovered/Not Resolved]
  - Diarrhoea [Not Recovered/Not Resolved]
  - Lung infection [Not Recovered/Not Resolved]
  - Abdominal pain [Not Recovered/Not Resolved]
